FAERS Safety Report 8249866-8 (Version None)
Quarter: 2012Q2

REPORT INFORMATION
  Report Type: 
  Country: None (occurrence: None)
  Receive Date: 20120402
  Receipt Date: 20120328
  Transmission Date: 20120825
  Serious: Yes (Death, Hospitalization, Other)
  Sender: FDA-Public Use
  Company Number: PHEH2010US00461

PATIENT
  Sex: Male

DRUGS (27)
  1. PREDNISONE TAB [Concomitant]
  2. POTASSIUM [Concomitant]
  3. IRON [Concomitant]
  4. TERAZOSIN HCL [Concomitant]
  5. TENORMIN [Concomitant]
     Dosage: 50 MG, BID
  6. PLAVIX [Concomitant]
  7. NIFEREX [Concomitant]
     Dosage: 150 MG, QD
  8. ZOFRAN [Concomitant]
     Dosage: 4 MG, UNK
  9. ALKERAN [Concomitant]
  10. ASPIRIN [Concomitant]
  11. FOLIC ACID [Concomitant]
     Dosage: 1 MG, QD
  12. CIPROFLOXACIN [Concomitant]
  13. TYLENOL [Concomitant]
     Dosage: 600 MG, QID
  14. ZOCOR [Concomitant]
  15. HYTRIN [Concomitant]
     Dosage: 2 MG, UNK
  16. NITROGLYCERIN [Concomitant]
     Dosage: 40 MG, UNK
  17. PROCAN [Concomitant]
     Dosage: 1000 MG, BID
  18. ATENOLOL [Concomitant]
  19. DEMADEX [Concomitant]
     Dosage: 20 MG ONE Q.D. IN THE A.M.
  20. MICRO-K [Concomitant]
     Dosage: 10 MEQ Q.D. IN THE A.M.
  21. GABAPENTIN [Concomitant]
  22. MAGNESIUM HYDROXIDE TAB [Concomitant]
     Dosage: 30 ML, UNK
  23. ZOMETA [Suspect]
     Indication: MULTIPLE MYELOMA
  24. ZANTAC [Concomitant]
  25. LASIX [Concomitant]
  26. DOCUSATE [Concomitant]
  27. SENOKOT [Concomitant]

REACTIONS (75)
  - ATELECTASIS [None]
  - ANHEDONIA [None]
  - URINARY TRACT INFECTION [None]
  - CONFUSIONAL STATE [None]
  - DYSPNOEA [None]
  - APHASIA [None]
  - PNEUMONIA [None]
  - OSTEOLYSIS [None]
  - SPINAL OSTEOARTHRITIS [None]
  - ARTHRALGIA [None]
  - CARDIOMEGALY [None]
  - ARTERIOSCLEROSIS [None]
  - TENDERNESS [None]
  - LOOSE TOOTH [None]
  - CATARACT [None]
  - CONSTIPATION [None]
  - ASTHMA [None]
  - RENAL FAILURE [None]
  - BACTERAEMIA [None]
  - METABOLIC ENCEPHALOPATHY [None]
  - AORTIC DILATATION [None]
  - SPLENIC GRANULOMA [None]
  - BACK PAIN [None]
  - GENERAL PHYSICAL HEALTH DETERIORATION [None]
  - INTERVERTEBRAL DISC DEGENERATION [None]
  - GINGIVAL DISORDER [None]
  - PHARYNGEAL OEDEMA [None]
  - OSTEOMYELITIS [None]
  - CORONARY ARTERY DISEASE [None]
  - THROMBOCYTOPENIA [None]
  - SINUSITIS [None]
  - HYPOKALAEMIA [None]
  - HYPOMAGNESAEMIA [None]
  - INTERVERTEBRAL DISCITIS [None]
  - LUMBAR SPINAL STENOSIS [None]
  - ANXIETY [None]
  - INTERVERTEBRAL DISC PROTRUSION [None]
  - GOUT [None]
  - HYPERTENSION [None]
  - GASTROOESOPHAGEAL REFLUX DISEASE [None]
  - CHEST PAIN [None]
  - ANGINA UNSTABLE [None]
  - HYPERGLYCAEMIA [None]
  - DYSPHAGIA [None]
  - POST HERPETIC NEURALGIA [None]
  - OSTEOPENIA [None]
  - MYOCARDIAL INFARCTION [None]
  - PAIN IN JAW [None]
  - JOINT SWELLING [None]
  - PANCYTOPENIA [None]
  - PROTEINURIA [None]
  - PLEURAL EFFUSION [None]
  - OSTEONECROSIS OF JAW [None]
  - ARTHRITIS [None]
  - OESOPHAGITIS [None]
  - PERIPHERAL VASCULAR DISORDER [None]
  - NEUTROPENIA [None]
  - DYSARTHRIA [None]
  - DEATH [None]
  - HERPES ZOSTER [None]
  - SPINAL COMPRESSION FRACTURE [None]
  - INFLUENZA [None]
  - ARRHYTHMIA [None]
  - EXPOSED BONE IN JAW [None]
  - PAIN [None]
  - DISABILITY [None]
  - BONE LESION [None]
  - AORTIC CALCIFICATION [None]
  - OSTEOARTHRITIS [None]
  - PATHOLOGICAL FRACTURE [None]
  - DELIRIUM [None]
  - ASTHENIA [None]
  - INCONTINENCE [None]
  - APLASTIC ANAEMIA [None]
  - GRANULOMATOUS LIVER DISEASE [None]
